FAERS Safety Report 6768803-6 (Version None)
Quarter: 2010Q2

REPORT INFORMATION
  Report Type: 
  Country: None (occurrence: None)
  Receive Date: 20100614
  Receipt Date: 20100610
  Transmission Date: 20101027
  Serious: Yes (Disabling, Other)
  Sender: FDA-Public Use
  Company Number: US-MERCK-0805USA02126

PATIENT
  Age: 49 Year
  Sex: Female
  Weight: 48 kg

DRUGS (5)
  1. FOSAMAX [Suspect]
     Indication: OSTEOPOROSIS
     Route: 048
     Dates: start: 20000101, end: 20060701
  2. FOSAMAX [Suspect]
     Route: 048
     Dates: start: 20000601
  3. FOSAMAX [Suspect]
     Route: 048
     Dates: start: 20010413
  4. RANITIDINE [Concomitant]
     Indication: GASTROOESOPHAGEAL REFLUX DISEASE
     Route: 065
     Dates: start: 20000101, end: 20060101
  5. PREMARIN [Concomitant]
     Indication: HORMONE REPLACEMENT THERAPY
     Route: 065
     Dates: start: 19900101

REACTIONS (45)
  - ABDOMINAL PAIN [None]
  - ANXIETY [None]
  - ARTHRALGIA [None]
  - ASTHENIA [None]
  - BACK DISORDER [None]
  - BACK PAIN [None]
  - BONE DISORDER [None]
  - COLITIS MICROSCOPIC [None]
  - CONSTIPATION [None]
  - COUGH [None]
  - CYSTITIS [None]
  - DEPRESSION [None]
  - DIARRHOEA [None]
  - EYE PAIN [None]
  - FATIGUE [None]
  - FOOD ALLERGY [None]
  - FRACTURE [None]
  - GASTRITIS EROSIVE [None]
  - HAEMATURIA [None]
  - HOT FLUSH [None]
  - HYPOAESTHESIA FACIAL [None]
  - LOOSE TOOTH [None]
  - MIGRAINE [None]
  - MULTIPLE SCLEROSIS [None]
  - MUSCLE STRAIN [None]
  - MUSCULOSKELETAL CHEST PAIN [None]
  - MUSCULOSKELETAL PAIN [None]
  - MYALGIA [None]
  - NAUSEA [None]
  - NECK PAIN [None]
  - NIGHT SWEATS [None]
  - ORAL DISORDER [None]
  - ORAL INFECTION [None]
  - ORAL PAIN [None]
  - OSTEOMYELITIS [None]
  - OSTEONECROSIS OF JAW [None]
  - PAIN IN JAW [None]
  - PARONYCHIA [None]
  - RHINORRHOEA [None]
  - SPLINTER [None]
  - SPONDYLOLISTHESIS [None]
  - SYNCOPE [None]
  - TENDONITIS [None]
  - VISION BLURRED [None]
  - WEIGHT GAIN POOR [None]
